FAERS Safety Report 6292767-5 (Version None)
Quarter: 2009Q3

REPORT INFORMATION
  Report Type: 
  Country: None (occurrence: None)
  Receive Date: 20090731
  Receipt Date: 20090729
  Transmission Date: 20100115
  Serious: Yes (Hospitalization)
  Sender: FDA-Public Use
  Company Number: B0586266A

PATIENT
  Age: 60 Year
  Sex: Male

DRUGS (10)
  1. LAMICTAL [Suspect]
     Indication: BIPOLAR DISORDER
     Route: 048
     Dates: start: 20090518, end: 20090601
  2. AVANDIA [Concomitant]
     Route: 065
  3. DEPAKOTE [Concomitant]
     Indication: BIPOLAR DISORDER
     Route: 048
     Dates: end: 20090523
  4. ELISOR [Concomitant]
     Route: 048
  5. PLAVIX [Concomitant]
     Route: 048
  6. CELECTOL [Concomitant]
     Route: 048
  7. TRIATEC [Concomitant]
     Route: 048
  8. AMAREL [Concomitant]
     Route: 065
  9. STAGID [Concomitant]
     Route: 048
  10. IMOVANE [Concomitant]

REACTIONS (6)
  - DRUG RASH WITH EOSINOPHILIA AND SYSTEMIC SYMPTOMS [None]
  - EOSINOPHILIA [None]
  - PRURITUS [None]
  - PYREXIA [None]
  - RASH PAPULAR [None]
  - SKIN EXFOLIATION [None]
